FAERS Safety Report 9504270 (Version 1)
Quarter: 2013Q3

REPORT INFORMATION
  Report Type: Spontaneous
  Country: US (occurrence: None)
  Receive Date: 20130905
  Receipt Date: 20130905
  Transmission Date: 20140515
  Serious: Yes (Other)
  Sender: FDA-Public Use
  Company Number: None

PATIENT
  Age: 25 Year
  Sex: Female
  Weight: 88 kg

DRUGS (11)
  1. OXCARBAZEPINE [Suspect]
     Indication: BIPOLAR DISORDER
     Dosage: 1 TAB BID ORAL
     Route: 048
     Dates: start: 20130822, end: 20130901
  2. FLUPHENAZINE [Concomitant]
  3. ACETAMINOPHEN [Concomitant]
  4. LURASIDONE [Concomitant]
  5. CLONAZEPAM [Concomitant]
  6. FOLIC ACID [Concomitant]
  7. VITAMIN D [Concomitant]
  8. IBUPROFEN [Concomitant]
  9. NICOTINE LOZENGES [Concomitant]
  10. MILK OF MAGNESIA [Concomitant]
  11. OXCARBAZEPINE [Concomitant]

REACTIONS (2)
  - Rash [None]
  - Rash [None]
